FAERS Safety Report 7788142-4 (Version None)
Quarter: 2011Q3

REPORT INFORMATION
  Report Type: 
  Country: None (occurrence: None)
  Receive Date: 20110929
  Receipt Date: 20110929
  Transmission Date: 20111222
  Serious: Yes (Hospitalization)
  Sender: FDA-Public Use
  Company Number: None

PATIENT
  Sex: Female
  Weight: 53.6 kg

DRUGS (5)
  1. BEVACIZUMAB (RHUMAB VEGF) [Suspect]
     Dosage: 685.5 MG
  2. CAPECITABINE [Concomitant]
  3. LEUCOVORIN CALCIUM [Suspect]
     Dosage: 624 MG
  4. FLUOROURACIL [Suspect]
     Dosage: 4368 MG
  5. ELOXATIN [Suspect]
     Dosage: 337 MG

REACTIONS (7)
  - VOMITING [None]
  - NAUSEA [None]
  - NEUROPATHY PERIPHERAL [None]
  - FATIGUE [None]
  - DIARRHOEA [None]
  - DEHYDRATION [None]
  - ABDOMINAL PAIN [None]
